FAERS Safety Report 10682496 (Version 1)
Quarter: 2014Q4

REPORT INFORMATION
  Report Type: Spontaneous
  Country: US (occurrence: None)
  Receive Date: 20141229
  Receipt Date: 20141229
  Transmission Date: 20150529
  Serious: Yes (Death)
  Sender: FDA-Public Use
  Company Number: None

PATIENT
  Age: 24 Year
  Sex: Male
  Weight: 104.33 kg

DRUGS (1)
  1. XARELTO [Suspect]
     Active Substance: RIVAROXABAN
     Indication: DEEP VEIN THROMBOSIS
     Dosage: 1TABLET ONCE DAILY TAKEN BY MOUTH
     Route: 048
     Dates: start: 20140315, end: 20141222

REACTIONS (4)
  - Headache [None]
  - Nausea [None]
  - Thrombosis [None]
  - Unresponsive to stimuli [None]

NARRATIVE: CASE EVENT DATE: 20141223
